FAERS Safety Report 4283122-8 (Version None)
Quarter: 2004Q1

REPORT INFORMATION
  Report Type: 
  Country: None (occurrence: None)
  Receive Date: 20040129
  Receipt Date: 20040115
  Transmission Date: 20041129
  Serious: Yes (Other)
  Sender: FDA-Public Use
  Company Number: NO-JNJFOC-20030801524

PATIENT
  Sex: Female

DRUGS (2)
  1. REMICADE [Suspect]
     Indication: PYODERMA GANGRENOSUM
     Dosage: INTRAVENOUS
     Route: 042
     Dates: start: 20020412, end: 20020412
  2. REMICADE [Suspect]
     Indication: PYODERMA GANGRENOSUM
     Dosage: INTRAVENOUS
     Route: 042
     Dates: start: 20030218, end: 20030218

REACTIONS (7)
  - C-REACTIVE PROTEIN INCREASED [None]
  - HEPATIC ENZYME INCREASED [None]
  - LEUKOCYTOSIS [None]
  - ORAL CANDIDIASIS [None]
  - PAIN EXACERBATED [None]
  - SKIN GRAFT [None]
  - SKIN ULCER [None]
